FAERS Safety Report 24147476 (Version 1)
Quarter: 2024Q3

REPORT INFORMATION
  Report Type: Spontaneous
  Country: US (occurrence: US)
  Receive Date: 20240729
  Receipt Date: 20240729
  Transmission Date: 20241016
  Serious: No
  Sender: ALKERMES
  Company Number: US-ALKERMES INC.-ALK-2024-001903

PATIENT
  Age: 59 Year
  Sex: Female
  Weight: 95.238 kg

DRUGS (1)
  1. LYBALVI [Suspect]
     Active Substance: OLANZAPINE\SAMIDORPHAN L-MALATE
     Indication: Depression
     Dosage: 10/10 MILLIGRAM, QD
     Route: 048
     Dates: start: 202406

REACTIONS (2)
  - Off label use [Not Recovered/Not Resolved]
  - Product dispensing issue [Not Recovered/Not Resolved]

NARRATIVE: CASE EVENT DATE: 20240601
